FAERS Safety Report 12229705 (Version 1)
Quarter: 2016Q1

REPORT INFORMATION
  Report Type: Spontaneous
  Country: US (occurrence: None)
  Receive Date: 20160331
  Receipt Date: 20160331
  Transmission Date: 20160526
  Serious: Yes (Disabling)
  Sender: FDA-Public Use
  Company Number: None

PATIENT
  Age: 75 Year
  Sex: Male
  Weight: 81.65 kg

DRUGS (3)
  1. MULTIPLE VITAMIN [Concomitant]
     Active Substance: VITAMINS
  2. ATORVASTATIN CALCIUM, 10MG TABLET 10MG APOTEX [Suspect]
     Active Substance: ATORVASTATIN CALCIUM
     Indication: BLOOD CHOLESTEROL INCREASED
     Route: 048
     Dates: start: 20160319, end: 20160329
  3. GLUCOSAMINE [Concomitant]
     Active Substance: GLUCOSAMINE

REACTIONS (3)
  - Joint range of motion decreased [None]
  - Product substitution issue [None]
  - Musculoskeletal pain [None]

NARRATIVE: CASE EVENT DATE: 20160327
